FAERS Safety Report 11120199 (Version 2)
Quarter: 2015Q2

REPORT INFORMATION
  Report Type: Spontaneous
  Country: US (occurrence: US)
  Receive Date: 20150518
  Receipt Date: 20150520
  Transmission Date: 20150821
  Serious: Yes (Hospitalization, Other)
  Sender: FDA-Public Use
  Company Number: US-GLAXOSMITHKLINE-US2015065665

PATIENT
  Age: 60 Year
  Sex: Female

DRUGS (17)
  1. VITAMIN B12 [Concomitant]
     Active Substance: CYANOCOBALAMIN
  2. LOW DOSE ASPIRIN [Concomitant]
     Active Substance: ASPIRIN
  3. IRON PILL [Concomitant]
     Active Substance: IRON
  4. CARVEDILOL. [Concomitant]
     Active Substance: CARVEDILOL
  5. DIGOXIN. [Concomitant]
     Active Substance: DIGOXIN
  6. AMIODARONE [Concomitant]
     Active Substance: AMIODARONE
  7. ADVAIR DISKUS [Suspect]
     Active Substance: FLUTICASONE PROPIONATE\SALMETEROL XINAFOATE
     Indication: CHRONIC OBSTRUCTIVE PULMONARY DISEASE
     Dosage: 1 PUFF(S), BID
     Route: 055
  8. FAMOTIDINE. [Concomitant]
     Active Substance: FAMOTIDINE
  9. SERTRALINE [Concomitant]
     Active Substance: SERTRALINE HYDROCHLORIDE
  10. ATORVASTATIN [Concomitant]
     Active Substance: ATORVASTATIN
  11. DULOXETINE [Concomitant]
     Active Substance: DULOXETINE
  12. ALBUTEROL. [Concomitant]
     Active Substance: ALBUTEROL
  13. XARELTO [Concomitant]
     Active Substance: RIVAROXABAN
  14. FUROSEMIDE. [Concomitant]
     Active Substance: FUROSEMIDE
  15. GLIPIZIDE. [Concomitant]
     Active Substance: GLIPIZIDE
  16. KLOR-CON [Concomitant]
     Active Substance: POTASSIUM CHLORIDE
  17. SPIRIVA [Concomitant]
     Active Substance: TIOTROPIUM BROMIDE MONOHYDRATE

REACTIONS (5)
  - Myocardial infarction [Recovered/Resolved with Sequelae]
  - Dyspnoea [Unknown]
  - Aortic occlusion [Recovered/Resolved with Sequelae]
  - Cardioversion [Recovered/Resolved with Sequelae]
  - Coronary arterial stent insertion [Recovered/Resolved with Sequelae]

NARRATIVE: CASE EVENT DATE: 201411
